FAERS Safety Report 13192539 (Version 1)
Quarter: 2017Q1

REPORT INFORMATION
  Report Type: Spontaneous
  Country: US (occurrence: US)
  Receive Date: 20170207
  Receipt Date: 20170207
  Transmission Date: 20170428
  Serious: No
  Sender: FDA-Public Use
  Company Number: US-TORRENT-00001327

PATIENT
  Sex: Female
  Weight: 77 kg

DRUGS (1)
  1. SILDENAFIL CITRATE TABLETS 20MG [Suspect]
     Active Substance: SILDENAFIL CITRATE

REACTIONS (5)
  - Asthenia [Unknown]
  - Nausea [Unknown]
  - Nasopharyngitis [Unknown]
  - Headache [Unknown]
  - Pyrexia [Unknown]
